FAERS Safety Report 9819333 (Version 2)
Quarter: 2014Q1

REPORT INFORMATION
  Report Type: Spontaneous
  Country: MX (occurrence: None)
  Receive Date: 20140113
  Receipt Date: 20140116
  Transmission Date: 20141002
  Serious: Yes (Hospitalization)
  Sender: FDA-Public Use
  Company Number: VAL_02896_2014

PATIENT
  Age: 57 Year
  Sex: Male
  Weight: 88.5 kg

DRUGS (9)
  1. METOPROLOL (METOPROLOL - METOPROLOL TARTRATE) [Suspect]
     Indication: CARDIAC FAILURE
     Dosage: (25 MG BID ORAL)
     Route: 048
     Dates: start: 20110829, end: 20131221
  2. DIGOXIN [Suspect]
     Indication: CARDIAC FAILURE
     Dosage: (0.25, QD, ORAL)
     Route: 048
     Dates: start: 20110829, end: 20131221
  3. ENALAPRIL [Suspect]
     Indication: CARDIAC FAILURE CHRONIC
     Dosage: (DOUBLE BLIND ORAL)
     Route: 048
     Dates: start: 20121023, end: 20131221
  4. FUROSEMIDE [Concomitant]
  5. ISOPHANE INSULIN [Concomitant]
  6. PRAVASTATIN [Concomitant]
  7. ASPIRIN [Concomitant]
  8. SPIRONOLACTONE [Concomitant]
  9. ALLOPURINOL [Concomitant]

REACTIONS (7)
  - Bradycardia [None]
  - Hypotension [None]
  - Cardiac failure [None]
  - Myocardial ischaemia [None]
  - Condition aggravated [None]
  - Extrasystoles [None]
  - Ventricular extrasystoles [None]
